FAERS Safety Report 26020617 (Version 1)
Quarter: 2025Q4

REPORT INFORMATION
  Report Type: Spontaneous
  Country: VN (occurrence: VN)
  Receive Date: 20251110
  Receipt Date: 20251110
  Transmission Date: 20260117
  Serious: Yes (Life-Threatening, Other)
  Sender: DAIICHI
  Company Number: VN-DSJP-DS-2025-174959-VN

PATIENT
  Age: 42 Year
  Sex: Male

DRUGS (6)
  1. EDOXABAN [Suspect]
     Active Substance: EDOXABAN
     Indication: Atrial fibrillation
     Dosage: 60 MG, QD
     Route: 048
     Dates: start: 20250604, end: 20250908
  2. EDOXABAN [Suspect]
     Active Substance: EDOXABAN
     Indication: Prophylaxis
     Dosage: 30 MG, QD ((? TABLET OF LIXIANA 60MG)
     Route: 048
     Dates: start: 20250909, end: 20251106
  3. EDOXABAN [Suspect]
     Active Substance: EDOXABAN
     Indication: Cardiac failure
  4. EDOXABAN [Suspect]
     Active Substance: EDOXABAN
     Indication: Cerebrovascular accident
  5. BETALOC ZOK PLUS [Concomitant]
     Indication: Product used for unknown indication
     Dosage: ? TABLET PER DAY IN THE MORNING
     Route: 065
  6. DAPAGLIFLOZIN [Concomitant]
     Active Substance: DAPAGLIFLOZIN
     Indication: Product used for unknown indication
     Dosage: 1 DOSAGE FORM, QD
     Route: 065

REACTIONS (4)
  - Abdominal pain [Unknown]
  - Vomiting [Unknown]
  - Aphasia [Unknown]
  - Hemiplegia [Unknown]

NARRATIVE: CASE EVENT DATE: 20251106
